FAERS Safety Report 8296833-4 (Version None)
Quarter: 2012Q2

REPORT INFORMATION
  Report Type: 
  Country: None (occurrence: None)
  Receive Date: 20120419
  Receipt Date: 20110711
  Transmission Date: 20120825
  Serious: No
  Sender: FDA-Public Use
  Company Number: US-ASTRAZENECA-2011SE41556

PATIENT
  Age: 53 Year
  Sex: Male

DRUGS (1)
  1. NEXIUM [Suspect]
     Dosage: EVERY DAY
     Route: 048
     Dates: start: 20010101

REACTIONS (3)
  - OSTEOPOROSIS [None]
  - BONE LOSS [None]
  - LOWER LIMB FRACTURE [None]
